FAERS Safety Report 7644189-X (Version None)
Quarter: 2011Q3

REPORT INFORMATION
  Report Type: 
  Country: None (occurrence: None)
  Receive Date: 20110729
  Receipt Date: 20110720
  Transmission Date: 20111222
  Serious: Yes (Other)
  Sender: FDA-Public Use
  Company Number: US-AMGEN-USASP2011037030

PATIENT
  Age: 51 Year
  Sex: Female

DRUGS (1)
  1. ENBREL [Suspect]
     Indication: PSORIATIC ARTHROPATHY
     Dosage: 50 MG, QWK
     Dates: start: 20110610

REACTIONS (6)
  - WEIGHT INCREASED [None]
  - JOINT STIFFNESS [None]
  - HEPATIC ENZYME INCREASED [None]
  - ARTHRALGIA [None]
  - HYPERTENSION [None]
  - JOINT EFFUSION [None]
